FAERS Safety Report 7539332-7 (Version None)
Quarter: 2011Q2

REPORT INFORMATION
  Report Type: 
  Country: None (occurrence: None)
  Receive Date: 20110610
  Receipt Date: 20110601
  Transmission Date: 20111010
  Serious: Yes (Other)
  Sender: FDA-Public Use
  Company Number: FR-JNJFOC-20110602382

PATIENT
  Sex: Female

DRUGS (18)
  1. OXYCODONE HCL [Suspect]
     Indication: PAIN
     Dosage: IN CASE OF PAIN
     Route: 048
     Dates: start: 20110502
  2. FORLAX [Concomitant]
     Route: 048
     Dates: start: 20110502, end: 20110510
  3. ACETAMINOPHEN [Concomitant]
     Route: 048
     Dates: start: 20110502
  4. HALDOL [Suspect]
     Route: 048
     Dates: start: 20110510, end: 20110512
  5. LEXOMIL [Suspect]
     Indication: PRODUCT USED FOR UNKNOWN INDICATION
     Route: 048
     Dates: start: 20110502, end: 20110509
  6. ALLOPURINOL [Concomitant]
     Route: 048
     Dates: start: 20110502, end: 20110508
  7. HALDOL [Suspect]
     Indication: ANXIETY
     Dosage: + 500 MCG IN CASE OF ANXIETY
     Route: 048
     Dates: start: 20110505, end: 20110510
  8. LYRICA [Suspect]
     Indication: PAIN
     Route: 048
     Dates: start: 20110512, end: 20110513
  9. ATARAX [Suspect]
     Indication: PRODUCT USED FOR UNKNOWN INDICATION
     Route: 048
     Dates: start: 20110502, end: 20110511
  10. PANTOPRAZOLE [Concomitant]
     Route: 048
     Dates: start: 20110429
  11. ATORVASTATIN [Concomitant]
     Route: 048
     Dates: end: 20110508
  12. OXYCONTIN [Suspect]
     Route: 048
  13. LEVEMIR [Concomitant]
     Indication: TYPE 2 DIABETES MELLITUS
     Dosage: 22 UI ON THE MORNING, 12 IU ON THE EVENING
     Route: 058
  14. LYRICA [Suspect]
     Route: 048
     Dates: start: 20110505, end: 20110512
  15. DULCOLAX [Concomitant]
     Route: 048
     Dates: start: 20110501, end: 20110509
  16. OXYCONTIN [Suspect]
     Indication: PAIN
     Route: 048
     Dates: start: 20110509, end: 20110513
  17. PREDNISOLONE [Concomitant]
     Route: 048
  18. REPAGLINIDE [Concomitant]
     Indication: TYPE 2 DIABETES MELLITUS
     Route: 048
     Dates: end: 20110508

REACTIONS (1)
  - CONFUSIONAL STATE [None]
